FAERS Safety Report 9332488 (Version 1)
Quarter: 2013Q2

REPORT INFORMATION
  Report Type: Spontaneous
  Country: FR (occurrence: FR)
  Receive Date: 20130606
  Receipt Date: 20130606
  Transmission Date: 20140414
  Serious: Yes (Hospitalization)
  Sender: FDA-Public Use
  Company Number: FR-ROCHE-1232955

PATIENT
  Age: 65 Year
  Sex: Female

DRUGS (16)
  1. HERCEPTIN [Suspect]
     Indication: BREAST CANCER
     Dosage: TOTAL DOSE OF 141 MG OF TRASTUZUMAB IN THREE COURSES
     Route: 042
     Dates: start: 20110328
  2. HERCEPTIN [Suspect]
     Route: 042
  3. HERCEPTIN [Suspect]
     Route: 042
  4. TAXOTERE [Suspect]
     Indication: BREAST CANCER
     Dosage: TOTAL DOSE OF 540 MG OF DOCETAXEL IN THREE COURSES
     Route: 042
     Dates: start: 20110328
  5. TAXOTERE [Suspect]
     Route: 042
  6. TAXOTERE [Suspect]
     Route: 042
  7. EFFERALGAN [Concomitant]
  8. PRIMPERAN (FRANCE) [Concomitant]
     Indication: NAUSEA
     Route: 065
  9. PRIMPERAN (FRANCE) [Concomitant]
     Indication: VOMITING
  10. LOPRESSOR [Concomitant]
     Route: 065
  11. TAHOR [Concomitant]
     Route: 065
  12. RILMENIDINE [Concomitant]
     Route: 065
  13. STABLON [Concomitant]
     Route: 065
  14. SERESTA [Concomitant]
     Route: 065
  15. ARANESP [Concomitant]
     Route: 065
  16. COTAREG [Concomitant]
     Dosage: 160/25
     Route: 065

REACTIONS (2)
  - Palmar-plantar erythrodysaesthesia syndrome [Recovered/Resolved]
  - Anaemia [Recovered/Resolved]
